FAERS Safety Report 9102663 (Version 1)
Quarter: 2013Q1

REPORT INFORMATION
  Report Type: Spontaneous
  Country: US (occurrence: US)
  Receive Date: 20130218
  Receipt Date: 20130218
  Transmission Date: 20140127
  Serious: Yes (Hospitalization)
  Sender: FDA-Public Use
  Company Number: US-BRISTOL-MYERS SQUIBB COMPANY-17363326

PATIENT
  Age: 51 Year
  Sex: Male
  Weight: 70.29 kg

DRUGS (3)
  1. COUMADIN [Suspect]
     Indication: TRICUSPID VALVE REPLACEMENT
     Dosage: THERAPY ON JAN13
  2. WARFARIN SODIUM [Suspect]
     Indication: TRICUSPID VALVE REPLACEMENT
  3. METOPROLOL [Concomitant]

REACTIONS (4)
  - Postural orthostatic tachycardia syndrome [Unknown]
  - Renal failure [Unknown]
  - International normalised ratio fluctuation [Recovered/Resolved]
  - Weight decreased [Unknown]
